FAERS Safety Report 8205800-8 (Version None)
Quarter: 2012Q1

REPORT INFORMATION
  Report Type: 
  Country: None (occurrence: None)
  Receive Date: 20120313
  Receipt Date: 20120224
  Transmission Date: 20120608
  Serious: Yes (Hospitalization)
  Sender: FDA-Public Use
  Company Number: SE-ELI_LILLY_AND_COMPANY-SE201202008418

PATIENT
  Age: 39 Year
  Sex: Female

DRUGS (4)
  1. CYMBALTA [Suspect]
     Indication: DEPRESSION
     Dosage: 90 MG, QD
     Route: 048
     Dates: start: 20100629, end: 20120129
  2. ALVEDON [Concomitant]
  3. TRAMADOL HCL [Concomitant]
  4. DESLORATADINE [Concomitant]

REACTIONS (3)
  - PAIN [None]
  - VOMITING [None]
  - MYALGIA [None]
